FAERS Safety Report 9383706 (Version 2)
Quarter: 2013Q3

REPORT INFORMATION
  Report Type: Spontaneous
  Country: JP (occurrence: JP)
  Receive Date: 20130704
  Receipt Date: 20130718
  Transmission Date: 20140515
  Serious: Yes (Hospitalization)
  Sender: FDA-Public Use
  Company Number: JP-JNJFOC-20130619754

PATIENT
  Age: 73 Year
  Sex: Male
  Weight: 48 kg

DRUGS (9)
  1. XARELTO [Suspect]
     Indication: CEREBROVASCULAR ACCIDENT PROPHYLAXIS
     Route: 048
     Dates: start: 20130509, end: 20130620
  2. XARELTO [Suspect]
     Indication: ATRIAL FIBRILLATION
     Route: 048
     Dates: start: 20130509, end: 20130620
  3. LIVALO [Concomitant]
     Route: 048
  4. BAYASPIRIN [Concomitant]
     Route: 048
  5. DIART [Concomitant]
     Route: 048
  6. ALDACTONE A [Concomitant]
     Route: 048
  7. SIGMART [Concomitant]
     Route: 048
  8. DIGOXIN [Concomitant]
     Route: 048
  9. TAKEPRON [Concomitant]
     Route: 048

REACTIONS (1)
  - Hepatic function abnormal [Recovered/Resolved]
